FAERS Safety Report 5697930-X (Version None)
Quarter: 2008Q2

REPORT INFORMATION
  Report Type: 
  Country: None (occurrence: None)
  Receive Date: 20080408
  Receipt Date: 20080327
  Transmission Date: 20081010
  Serious: Yes (Hospitalization)
  Sender: FDA-Public Use
  Company Number: BR-SANOFI-SYNTHELABO-A01200803522

PATIENT
  Sex: Female
  Weight: 74 kg

DRUGS (3)
  1. ATENOLOL [Concomitant]
     Indication: HYPERTENSION
     Route: 048
     Dates: start: 19980101
  2. INIBEX [Concomitant]
     Indication: WEIGHT DECREASED
     Route: 048
     Dates: start: 20080108, end: 20080301
  3. STILNOX [Suspect]
     Indication: INSOMNIA
     Route: 065
     Dates: start: 20080108, end: 20080325

REACTIONS (12)
  - AMNESIA [None]
  - DIPLOPIA [None]
  - HALLUCINATION [None]
  - ILL-DEFINED DISORDER [None]
  - MUSCULAR WEAKNESS [None]
  - OEDEMA PERIPHERAL [None]
  - PAIN IN EXTREMITY [None]
  - SCIATICA [None]
  - SENSORY LOSS [None]
  - STOMATITIS [None]
  - THROMBOSIS [None]
  - URTICARIA [None]
